FAERS Safety Report 21321884 (Version 1)
Quarter: 2022Q3

REPORT INFORMATION
  Report Type: Spontaneous
  Country: US (occurrence: US)
  Receive Date: 20220912
  Receipt Date: 20220912
  Transmission Date: 20221026
  Serious: No
  Sender: FDA-Public Use
  Company Number: US-ALLERGAN-2132093US

PATIENT
  Age: 82 Year
  Sex: Male

DRUGS (1)
  1. ANDRODERM [Suspect]
     Active Substance: TESTOSTERONE
     Indication: Blood testosterone decreased
     Dosage: 2 MG, QD
     Route: 061
     Dates: end: 20210910

REACTIONS (8)
  - COVID-19 [Unknown]
  - Chest discomfort [Not Recovered/Not Resolved]
  - Abdominal distension [Recovered/Resolved]
  - Myalgia [Not Recovered/Not Resolved]
  - Neck pain [Not Recovered/Not Resolved]
  - Gastrooesophageal sphincter insufficiency [Recovered/Resolved]
  - Product administered at inappropriate site [Unknown]
  - Chest pain [Not Recovered/Not Resolved]

NARRATIVE: CASE EVENT DATE: 20210910
